FAERS Safety Report 4828614-5 (Version None)
Quarter: 2005Q4

REPORT INFORMATION
  Report Type: 
  Country: None (occurrence: None)
  Receive Date: 20051014
  Receipt Date: 20050628
  Transmission Date: 20060501
  Serious: No
  Sender: FDA-Public Use
  Company Number: 2005SP001667

PATIENT
  Sex: Male

DRUGS (2)
  1. LUNESTA [Suspect]
     Dosage: ORAL
     Route: 048
     Dates: start: 20050101, end: 20050701
  2. VICODIN [Concomitant]

REACTIONS (2)
  - CONFUSIONAL STATE [None]
  - SOMNOLENCE [None]
